FAERS Safety Report 4807061-6 (Version None)
Quarter: 2005Q4

REPORT INFORMATION
  Report Type: 
  Country: None (occurrence: None)
  Receive Date: 20051019
  Receipt Date: 20050707
  Transmission Date: 20060501
  Serious: Yes (Other)
  Sender: FDA-Public Use
  Company Number: EWC051046268

PATIENT
  Age: 72 Year
  Sex: Male
  Weight: 64 kg

DRUGS (7)
  1. GEMCITABINE HYDROCHLORIDE                      (GEMCITABINE) [Suspect]
     Indication: NON-SMALL CELL LUNG CANCER
     Dosage: 1580 MG/4 OTHER
     Route: 042
     Dates: start: 20041005, end: 20041116
  2. CARBOPLATIN [Suspect]
     Indication: NON-SMALL CELL LUNG CANCER
     Dosage: 340 MG/2 OTHER
     Route: 050
     Dates: start: 20041005, end: 20041109
  3. ZOFRAN [Concomitant]
  4. ULCERMIN (SUCRALFATE) [Concomitant]
  5. CODEIN                   (CODEINE PHOSPHATE HEMIHYDRATE) [Concomitant]
  6. ONDANSETRON [Concomitant]
  7. TRANSAMIN (TRANEXAMIC ACID) [Concomitant]

REACTIONS (4)
  - HAEMOGLOBIN DECREASED [None]
  - HAEMOPTYSIS [None]
  - RED BLOOD CELL COUNT DECREASED [None]
  - WHITE BLOOD CELL COUNT INCREASED [None]
